FAERS Safety Report 6233742-6 (Version None)
Quarter: 2009Q2

REPORT INFORMATION
  Report Type: 
  Country: None (occurrence: None)
  Receive Date: 20090618
  Receipt Date: 20070420
  Transmission Date: 20091009
  Serious: Yes (Hospitalization)
  Sender: FDA-Public Use
  Company Number: US-ASTRAZENECA-2007UW01412

PATIENT
  Age: 9289 Day
  Sex: Male
  Weight: 81.6 kg

DRUGS (6)
  1. SEROQUEL [Suspect]
     Indication: POST-TRAUMATIC STRESS DISORDER
     Route: 048
     Dates: start: 20031021, end: 20040909
  2. SEROQUEL [Suspect]
     Route: 048
  3. LANTUS [Concomitant]
     Indication: DIABETES MELLITUS
     Dosage: 10-50 UNITS, 40 UNITS TWICE A DAY
     Route: 058
     Dates: start: 20050523
  4. ACTOS [Concomitant]
     Dosage: 15 MG-30 MG
     Route: 048
     Dates: start: 20050523
  5. GLUCOPHAGE [Concomitant]
     Indication: DIABETES MELLITUS
     Dosage: 500 MG-1700 MG
     Dates: start: 20050128
  6. GLUCOTROL [Concomitant]
     Dosage: 2.5-200 MG
     Dates: start: 20050214

REACTIONS (15)
  - ABSCESS [None]
  - BRONCHITIS [None]
  - CARBUNCLE [None]
  - CELLULITIS [None]
  - DIABETES MELLITUS [None]
  - DIABETIC KETOACIDOSIS [None]
  - HOSPITALISATION [None]
  - HYPERGLYCAEMIA [None]
  - PNEUMONIA [None]
  - RHINITIS ALLERGIC [None]
  - SKIN LACERATION [None]
  - TONSILLITIS [None]
  - TYPE 1 DIABETES MELLITUS [None]
  - TYPE 2 DIABETES MELLITUS [None]
  - UPPER RESPIRATORY TRACT INFECTION [None]
